FAERS Safety Report 11208614 (Version 1)
Quarter: 2015Q2

REPORT INFORMATION
  Report Type: Report from Study
  Country: US (occurrence: US)
  Receive Date: 20150622
  Receipt Date: 20150622
  Transmission Date: 20150821
  Serious: No
  Sender: FDA-Public Use
  Company Number: US-ABBVIE-15P-163-1366583-00

PATIENT

DRUGS (1)
  1. VIEKIRA PAK [Suspect]
     Active Substance: DASABUVIR\OMBITASVIR\PARITAPREVIR\RITONAVIR
     Indication: CHRONIC HEPATITIS C
     Route: 048
     Dates: start: 20150224

REACTIONS (7)
  - Headache [Unknown]
  - Epistaxis [Unknown]
  - Increased appetite [Unknown]
  - Dizziness [Unknown]
  - Somnolence [Unknown]
  - Abdominal distension [Unknown]
  - Insomnia [Recovering/Resolving]
